FAERS Safety Report 9688593 (Version 2)
Quarter: 2013Q4

REPORT INFORMATION
  Report Type: Spontaneous
  Country: GB (occurrence: GB)
  Receive Date: 20131114
  Receipt Date: 20131114
  Transmission Date: 20140711
  Serious: Yes (Death)
  Sender: FDA-Public Use
  Company Number: GB-PFIZER INC-2013305432

PATIENT
  Age: 76 Year
  Sex: Male

DRUGS (1)
  1. CYKLOKAPRON [Suspect]
     Indication: EPISTAXIS
     Route: 048

REACTIONS (2)
  - Bone marrow failure [Fatal]
  - Dysphagia [Unknown]
